FAERS Safety Report 17043165 (Version 5)
Quarter: 2019Q4

REPORT INFORMATION
  Report Type: Spontaneous
  Country: PT (occurrence: PT)
  Receive Date: 20191118
  Receipt Date: 20191217
  Transmission Date: 20200122
  Serious: Yes (Hospitalization, Other)
  Sender: FDA-Public Use
  Company Number: PT-PFIZER INC-2019493492

PATIENT
  Age: 83 Year
  Sex: Female

DRUGS (10)
  1. FOLIC ACID. [Suspect]
     Active Substance: FOLIC ACID
     Dosage: 5 MG, 1X/DAY (5 MG ID)
  2. AMINOPHYLLINE. [Suspect]
     Active Substance: AMINOPHYLLINE
     Dosage: 225 MG, 1X/DAY (112.5 MG 2ID)
  3. PANTOPRAZOLE [Suspect]
     Active Substance: PANTOPRAZOLE
     Dosage: 20 MG, 1X/DAY (20 MG ID)
     Route: 006
  4. FUROSEMIDA [FUROSEMIDE] [Suspect]
     Active Substance: FUROSEMIDE
     Dosage: 80 MG, 1X/DAY (40 MG 2ID)
  5. ROSUVASTATIN. [Suspect]
     Active Substance: ROSUVASTATIN
     Dosage: 10 MG, 1X/DAY (10 MG ID)
  6. ESCITALOPRAM OXALATE. [Suspect]
     Active Substance: ESCITALOPRAM OXALATE
     Dosage: 10 MG, 1X/DAY (10 MG ID)
  7. ALOPURINOL [Suspect]
     Active Substance: ALLOPURINOL
     Dosage: 150 MG, 1X/DAY (150 MG ID)
  8. CARVEDILOL. [Suspect]
     Active Substance: CARVEDILOL
     Dosage: 6.25 MG, 1X/DAY (6.25 MG ID)
  9. RIVASTIGMINE. [Suspect]
     Active Substance: RIVASTIGMINE
     Dosage: 4.6 MG, 1X/DAY (4.6 MG/24H)
  10. FENOFIBRATE. [Suspect]
     Active Substance: FENOFIBRATE
     Dosage: 267 MG, 1X/DAY (267 MG ID)

REACTIONS (3)
  - Autoimmune haemolytic anaemia [Recovering/Resolving]
  - Pulmonary embolism [Recovering/Resolving]
  - Myelodysplastic syndrome [Unknown]
